FAERS Safety Report 5522059-0 (Version None)
Quarter: 2007Q4

REPORT INFORMATION
  Report Type: 
  Country: None (occurrence: None)
  Receive Date: 20071120
  Receipt Date: 20071108
  Transmission Date: 20080405
  Serious: No
  Sender: FDA-Public Use
  Company Number: US-ELI_LILLY_AND_COMPANY-US200711000259

PATIENT
  Age: 35 Year
  Sex: Male

DRUGS (3)
  1. ZYPREXA [Suspect]
     Indication: SCHIZOAFFECTIVE DISORDER
     Dosage: 6 MG, UNK
     Dates: start: 19960101
  2. ZYPREXA [Suspect]
     Dosage: 20 MG, UNK
     Dates: end: 20010101
  3. ZYPREXA [Suspect]
     Dosage: 10 MG, UNK
     Dates: start: 20070301

REACTIONS (5)
  - ABNORMAL BEHAVIOUR [None]
  - MALAISE [None]
  - SOMNOLENCE [None]
  - STOMACH DISCOMFORT [None]
  - WEIGHT INCREASED [None]
